FAERS Safety Report 11620946 (Version 6)
Quarter: 2015Q4

REPORT INFORMATION
  Report Type: Spontaneous
  Country: JP (occurrence: JP)
  Receive Date: 20151012
  Receipt Date: 20151104
  Transmission Date: 20160304
  Serious: Yes (Other)
  Sender: FDA-Public Use
  Company Number: PHJP2015JP017495

PATIENT
  Age: 56 Year
  Sex: Male

DRUGS (1)
  1. NEORAL [Suspect]
     Active Substance: CYCLOSPORINE
     Indication: PSORIASIS
     Dosage: 150 MG, UNK
     Route: 048
     Dates: start: 2006

REACTIONS (4)
  - Multiple sclerosis [Recovering/Resolving]
  - Ocular dysmetria [Recovering/Resolving]
  - Diplopia [Recovering/Resolving]
  - Hypoaesthesia oral [Recovering/Resolving]
